FAERS Safety Report 4284560-X (Version None)
Quarter: 2004Q1

REPORT INFORMATION
  Report Type: 
  Country: None (occurrence: None)
  Receive Date: 20040130
  Receipt Date: 20040116
  Transmission Date: 20041129
  Serious: Yes (Life-Threatening, Hospitalization)
  Sender: FDA-Public Use
  Company Number: TEST00203001765

PATIENT
  Age: 57 Year
  Sex: Male

DRUGS (10)
  1. ANDROGEL [Suspect]
     Indication: HYPOGONADISM MALE
     Dosage: 5 G QD TD
     Route: 062
     Dates: start: 20030326, end: 20031203
  2. ANDROGEL [Suspect]
     Indication: HYPOGONADISM MALE
     Dosage: 5 G QD TD
     Route: 062
     Dates: start: 20040115
  3. FUROSEMIDE [Concomitant]
  4. NEURONTIN [Concomitant]
  5. FLOMAX [Concomitant]
  6. ZAROXOLYN [Concomitant]
  7. AMITRIPTYLINE HCL [Concomitant]
  8. NORVASC [Concomitant]
  9. CELEXA [Concomitant]
  10. INSULIN HUMULIN 50/50 (INSULIN HUMULIN 50/50) [Concomitant]

REACTIONS (13)
  - ACTIVATED PARTIAL THROMBOPLASTIN TIME PROLONGED [None]
  - ALANINE AMINOTRANSFERASE INCREASED [None]
  - ANAEMIA [None]
  - ASCITES [None]
  - ASPARTATE AMINOTRANSFERASE INCREASED [None]
  - CELLULITIS [None]
  - DYSPNOEA [None]
  - HYPERKALAEMIA [None]
  - HYPERTENSION [None]
  - OEDEMA [None]
  - PLEURAL EFFUSION [None]
  - RENAL TUBULAR NECROSIS [None]
  - TRANSFUSION REACTION [None]
